FAERS Safety Report 25546557 (Version 1)
Quarter: 2025Q3

REPORT INFORMATION
  Report Type: Spontaneous
  Country: GB (occurrence: GB)
  Receive Date: 20250713
  Receipt Date: 20250713
  Transmission Date: 20251020
  Serious: Yes (Other)
  Sender: ORGANON
  Company Number: None

PATIENT
  Age: 76 Year
  Sex: Male

DRUGS (1)
  1. FINASTERIDE [Suspect]
     Active Substance: FINASTERIDE
     Indication: Benign prostatic hyperplasia
     Dosage: 5 MILLIGRAM, Q24H (ONCE A DAY)
     Dates: start: 20250605, end: 20250701

REACTIONS (1)
  - Gait disturbance [Recovering/Resolving]

NARRATIVE: CASE EVENT DATE: 20250605
